FAERS Safety Report 18221082 (Version 1)
Quarter: 2020Q3

REPORT INFORMATION
  Report Type: Spontaneous
  Country: US (occurrence: US)
  Receive Date: 20200902
  Receipt Date: 20200902
  Transmission Date: 20201103
  Serious: Yes (Other)
  Sender: FDA-Public Use
  Company Number: US-PFIZER INC-2020337490

PATIENT
  Age: 72 Year
  Sex: Male

DRUGS (1)
  1. DOPAMINE HCL [Suspect]
     Active Substance: DOPAMINE HYDROCHLORIDE
     Indication: BLOOD PRESSURE MANAGEMENT
     Dosage: 420 UG/MIN (6 UG/KG/MIN)

REACTIONS (1)
  - Peripheral ischaemia [Recovered/Resolved]
